FAERS Safety Report 15284362 (Version 2)
Quarter: 2018Q3

REPORT INFORMATION
  Report Type: Spontaneous
  Country: GB (occurrence: GB)
  Receive Date: 20180816
  Receipt Date: 20180828
  Transmission Date: 20181010
  Serious: Yes (Other)
  Sender: FDA-Public Use
  Company Number: GB-009507513-1808GBR002969

PATIENT
  Age: 21 Year
  Sex: Female

DRUGS (1)
  1. IMPLANON [Suspect]
     Active Substance: ETONOGESTREL
     Indication: CONTRACEPTION
     Dosage: UNK
     Route: 059
     Dates: start: 20060808

REACTIONS (3)
  - Abortion spontaneous [Recovered/Resolved]
  - Pregnancy with contraceptive device [Unknown]
  - Device failure [Unknown]

NARRATIVE: CASE EVENT DATE: 20070717
